FAERS Safety Report 20405863 (Version 1)
Quarter: 2022Q1

REPORT INFORMATION
  Report Type: Spontaneous
  Country: US (occurrence: US)
  Receive Date: 20220131
  Receipt Date: 20220131
  Transmission Date: 20220423
  Serious: No
  Sender: FDA-Public Use
  Company Number: US-PFIZER INC-202101513425

PATIENT
  Age: 54 Year
  Sex: Female
  Weight: 86.168 kg

DRUGS (3)
  1. IBRANCE [Suspect]
     Active Substance: PALBOCICLIB
     Indication: Breast cancer female
     Dosage: 125 MG, CYCLIC (1 DAILY FOR 21 DAYS)
     Route: 048
     Dates: start: 20210923
  2. FASLODEX [Concomitant]
     Active Substance: FULVESTRANT
     Dosage: (250 MG\5ML)
  3. ANASTROZOLE [Concomitant]
     Active Substance: ANASTROZOLE
     Dosage: 1 MG

REACTIONS (2)
  - Nausea [Unknown]
  - Feeling abnormal [Unknown]

NARRATIVE: CASE EVENT DATE: 20210101
